FAERS Safety Report 8614234-3 (Version None)
Quarter: 2012Q3

REPORT INFORMATION
  Report Type: 
  Country: None (occurrence: None)
  Receive Date: 20120813
  Receipt Date: 20120813
  Transmission Date: 20120928
  Serious: Yes (Hospitalization)
  Sender: FDA-Public Use
  Company Number: None

PATIENT
  Sex: Female
  Weight: 37.1 kg

DRUGS (3)
  1. CYCLOPHOSPHAMIDE [Suspect]
     Dosage: 1000 MG
     Dates: end: 20120727
  2. NEULASTA [Suspect]
     Dosage: 6 MG
     Dates: end: 20120728
  3. DOXORUBICIN HCL [Suspect]
     Dosage: 100 MG
     Dates: end: 20120727

REACTIONS (6)
  - HEART RATE INCREASED [None]
  - FATIGUE [None]
  - BODY TEMPERATURE INCREASED [None]
  - HYPOPHAGIA [None]
  - OROPHARYNGEAL PAIN [None]
  - ASTHENIA [None]
